FAERS Safety Report 23789862 (Version 1)
Quarter: 2024Q2

REPORT INFORMATION
  Report Type: Spontaneous
  Country: US (occurrence: US)
  Receive Date: 20240426
  Receipt Date: 20240426
  Transmission Date: 20240716
  Serious: No
  Sender: FDA-Public Use
  Company Number: US-ANIPHARMA-2024-US-018413

PATIENT
  Sex: Male

DRUGS (5)
  1. CANDESARTAN [Suspect]
     Active Substance: CANDESARTAN
     Indication: Migraine
     Dosage: 4 MILLIGRAMS DAILY /  2 EVERY 1 DAY
  2. AMITRIPTYLINE [Suspect]
     Active Substance: AMITRIPTYLINE
     Dosage: 25.0 MILLIGRAM
  3. FROVATRIPTAN [Suspect]
     Active Substance: FROVATRIPTAN
     Dosage: 2.5 MILLIGRAM /  2 EVERY 1 DAY
  4. PROPRANOLOL [Suspect]
     Active Substance: PROPRANOLOL HYDROCHLORIDE
     Dosage: 40.0 MILLIGRAM, 2 EVERY 1 DAY
     Route: 048
  5. TOPIRAMATE [Suspect]
     Active Substance: TOPIRAMATE
     Dosage: 100.0 MILLIGRAM 1 EVERY 1 DAY

REACTIONS (2)
  - Drug ineffective for unapproved indication [Unknown]
  - Product use in unapproved indication [Unknown]
